FAERS Safety Report 19069151 (Version 1)
Quarter: 2021Q1

REPORT INFORMATION
  Report Type: Spontaneous
  Country: GB (occurrence: GB)
  Receive Date: 20210329
  Receipt Date: 20210329
  Transmission Date: 20210420
  Serious: Yes (Disabling)
  Sender: FDA-Public Use
  Company Number: GB-TEVA-2021-GB-1894282

PATIENT
  Age: 73 Year
  Sex: Female
  Weight: 81 kg

DRUGS (20)
  1. SOLIFENACIN [Concomitant]
     Active Substance: SOLIFENACIN
     Dosage: 1 DOSAGE FORMS DAILY;
     Dates: start: 20200907, end: 20210202
  2. CLOBAZAM. [Concomitant]
     Active Substance: CLOBAZAM
     Indication: MUSCLE SPASMS
     Dosage: 2 DOSAGE FORMS DAILY;
     Dates: start: 20200909
  3. EPADERM [Concomitant]
     Active Substance: MINERAL OIL\PETROLATUM\WAX, EMULSIFYING
     Dosage: TO BE APPLIED TO ALL ITCHY AREAS AT LEAST TWICE A DAY BY CARERS.
     Dates: start: 20210122
  4. PREGABALIN. [Suspect]
     Active Substance: PREGABALIN
     Dosage: 2 DOSAGE FORMS DAILY;
     Dates: start: 20210126
  5. CALCICHEW D3 [Concomitant]
     Active Substance: CALCIUM\CHOLECALCIFEROL
     Dosage: 2 DOSAGE FORMS DAILY;
     Dates: start: 20200907
  6. IBUPROFEN. [Concomitant]
     Active Substance: IBUPROFEN
     Dosage: APPLY 3?4 TIMES/DAY
     Dates: start: 20210305
  7. OLIVE OIL [Concomitant]
     Active Substance: OLIVE OIL
     Dosage: APPLY 2?3 DROPS TO RIGHT EAR AT BEDTIME FOR 2?3.
     Dates: start: 20210215
  8. FOLIC ACID. [Concomitant]
     Active Substance: FOLIC ACID
     Dosage: 1 DOSAGE FORMS DAILY;
     Dates: start: 20201113
  9. TRAMADOL. [Concomitant]
     Active Substance: TRAMADOL
     Dosage: 4 DOSAGE FORMS DAILY;
     Dates: start: 20200909
  10. TRAZODONE [Concomitant]
     Active Substance: TRAZODONE HYDROCHLORIDE
     Dosage: 1 DOSAGE FORMS DAILY; AT NIGHT
     Dates: start: 20200909
  11. ZEROBASE [Concomitant]
     Active Substance: MINERAL OIL\PARAFFIN
     Dosage: USE AS DIRECTED
     Dates: start: 20200722
  12. CARBAMAZEPINE. [Concomitant]
     Active Substance: CARBAMAZEPINE
     Dosage: 1 DOSAGE FORMS DAILY; FOR FOUR WEEKS THEN STOP
     Dates: start: 20201210, end: 20210126
  13. COTRIMOXAZOLE [Concomitant]
     Active Substance: SULFAMETHOXAZOLE\TRIMETHOPRIM
     Dosage: 960 MG, AS A SINGLE DOSE 2 HOU.
     Dates: start: 20201111
  14. HYDROCORTISONE. [Concomitant]
     Active Substance: HYDROCORTISONE
     Dosage: APPLY TO THE AFFECTED AREA(S) ONCE DAILY.
     Dates: start: 20200909
  15. LAXIDO [Concomitant]
     Active Substance: POLYETHYLENE GLYCOL 3350\POTASSIUM CHLORIDE\SODIUM BICARBONATE\SODIUM CHLORIDE
     Dosage: 1 SACHET ONCE OR TWICE DAILY WHEN REQUIRED FOR ...
     Dates: start: 20200907
  16. LEVOTHYROXINE. [Concomitant]
     Active Substance: LEVOTHYROXINE
     Dosage: 1 DOSAGE FORMS DAILY;
     Dates: start: 20200909
  17. OMEPRAZOLE. [Concomitant]
     Active Substance: OMEPRAZOLE
     Dosage: 1 DOSAGE FORMS DAILY;
     Dates: start: 20201102
  18. PARACETAMOL [Concomitant]
     Active Substance: ACETAMINOPHEN
     Dosage: 8 DOSAGE FORMS DAILY;
     Dates: start: 20210305
  19. RAMIPRIL. [Concomitant]
     Active Substance: RAMIPRIL
     Dosage: 1 DOSAGE FORMS DAILY;
     Dates: start: 20200907
  20. MIRABEGRON [Concomitant]
     Active Substance: MIRABEGRON
     Dosage: 1 DOSAGE FORMS DAILY;
     Dates: start: 20201130, end: 20210122

REACTIONS (2)
  - Hallucination, visual [Recovering/Resolving]
  - Mobility decreased [Recovering/Resolving]

NARRATIVE: CASE EVENT DATE: 20210308
